FAERS Safety Report 5850195-8 (Version None)
Quarter: 2008Q3

REPORT INFORMATION
  Report Type: 
  Country: None (occurrence: None)
  Receive Date: 20080731
  Receipt Date: 20080411
  Transmission Date: 20090109
  Serious: No
  Sender: FDA-Public Use
  Company Number: US200804003387

PATIENT
  Age: 76 Year
  Sex: Female
  Weight: 80.3 kg

DRUGS (3)
  1. BYETTA [Suspect]
     Indication: TYPE 2 DIABETES MELLITUS
     Dosage: 5 UG, 2/D, SUBCUTANEOUS ; 5 UG, DAILY (1/D), SUBCUTANEOUS
     Route: 058
     Dates: start: 20071101, end: 20071201
  2. BYETTA [Suspect]
     Indication: TYPE 2 DIABETES MELLITUS
     Dosage: 5 UG, 2/D, SUBCUTANEOUS ; 5 UG, DAILY (1/D), SUBCUTANEOUS
     Route: 058
     Dates: start: 20080401
  3. GLUCOPHAGE /USA/ (METFORMIN HYDROCHLORIDE) [Concomitant]

REACTIONS (8)
  - BLOOD GLUCOSE DECREASED [None]
  - CHEST DISCOMFORT [None]
  - HOT FLUSH [None]
  - HYPERHIDROSIS [None]
  - NAUSEA [None]
  - SENSATION OF HEAVINESS [None]
  - VISUAL IMPAIRMENT [None]
  - WEIGHT DECREASED [None]
